FAERS Safety Report 18140212 (Version 2)
Quarter: 2020Q3

REPORT INFORMATION
  Report Type: Report from Study
  Country: FR (occurrence: FR)
  Receive Date: 20200812
  Receipt Date: 20200819
  Transmission Date: 20201103
  Serious: Yes (Hospitalization)
  Sender: FDA-Public Use
  Company Number: FR-MYLANLABS-2020M1071083

PATIENT
  Age: 60 Year
  Sex: Male

DRUGS (18)
  1. SUFENTA [Concomitant]
     Active Substance: SUFENTANIL CITRATE
     Dosage: UNK
  2. AZITHROMYCIN ANHYDROUS. [Suspect]
     Active Substance: AZITHROMYCIN ANHYDROUS
     Indication: COVID-19
     Dosage: 500 MG, QD
     Route: 048
     Dates: start: 20200420, end: 20200420
  3. NOVORAPID [Concomitant]
     Active Substance: INSULIN ASPART
     Dosage: UNK
  4. PLAQUENIL                          /00072602/ [Suspect]
     Active Substance: HYDROXYCHLOROQUINE DIPHOSPHATE
     Indication: COVID-19
     Dosage: 600 MG, QD
     Route: 048
     Dates: start: 20200420, end: 20200424
  5. TRACRIUM [Concomitant]
     Active Substance: ATRACURIUM BESYLATE
     Dosage: UNK
  6. HYPNOVEL                           /00634101/ [Concomitant]
     Active Substance: MIDAZOLAM HYDROCHLORIDE
     Dosage: UNK
  7. LANSOPRAZOLE. [Concomitant]
     Active Substance: LANSOPRAZOLE
     Dosage: UNK
  8. DIPRIVAN [Concomitant]
     Active Substance: PROPOFOL
     Dosage: UNK
  9. NORADRENALINE                      /00127501/ [Concomitant]
     Active Substance: NOREPINEPHRINE
     Dosage: UNK
  10. TAZOCILLINE [Concomitant]
     Active Substance: PIPERACILLIN SODIUM\TAZOBACTAM SODIUM
     Dosage: UNK
  11. SARILUMAB [Suspect]
     Active Substance: SARILUMAB
     Indication: COVID-19
     Dosage: 400 MG, QD
     Route: 042
     Dates: start: 20200420, end: 20200420
  12. SARILUMAB [Suspect]
     Active Substance: SARILUMAB
     Dosage: 400 MG, QD
     Route: 042
     Dates: start: 20200422, end: 20200422
  13. HEPARINE                           /00027701/ [Concomitant]
     Active Substance: HEPARIN SODIUM
     Dosage: UNK
  14. UMULINE [Concomitant]
     Active Substance: INSULIN HUMAN
     Dosage: UNK
  15. AMIKLIN                            /00391001/ [Concomitant]
     Active Substance: AMIKACIN SULFATE
     Dosage: UNK
  16. LANTUS [Concomitant]
     Active Substance: INSULIN GLARGINE
     Dosage: UNK
  17. AZITHROMYCIN ANHYDROUS. [Suspect]
     Active Substance: AZITHROMYCIN ANHYDROUS
     Dosage: 250 MG, QD
     Route: 048
     Dates: start: 20200421, end: 20200424
  18. LASILIX                            /00032601/ [Concomitant]
     Active Substance: FUROSEMIDE
     Dosage: UNK

REACTIONS (6)
  - Jugular vein thrombosis [Recovered/Resolved]
  - Staphylococcal bacteraemia [Recovered/Resolved]
  - Staphylococcal infection [Not Recovered/Not Resolved]
  - Pneumonia bacterial [Not Recovered/Not Resolved]
  - Thrombosis [Recovered/Resolved]
  - Off label use [Unknown]

NARRATIVE: CASE EVENT DATE: 2020
